FAERS Safety Report 4339156-8 (Version None)
Quarter: 2004Q2

REPORT INFORMATION
  Report Type: 
  Country: None (occurrence: None)
  Receive Date: 20040415
  Receipt Date: 20040220
  Transmission Date: 20050107
  Serious: Yes (Other)
  Sender: FDA-Public Use
  Company Number: DE-BRISTOL-MYERS SQUIBB COMPANY-12513370

PATIENT
  Age: 32 Year
  Sex: Male

DRUGS (3)
  1. ATAZANAVIR [Suspect]
     Dates: start: 20031113, end: 20040216
  2. VIDEX [Concomitant]
     Dates: start: 20031113, end: 20040216
  3. EPIVIR [Concomitant]
     Dates: start: 20031113, end: 20040216

REACTIONS (14)
  - BLOOD BILIRUBIN INCREASED [None]
  - BRONCHITIS [None]
  - DYSPHAGIA [None]
  - GLOSSODYNIA [None]
  - HERPETIC STOMATITIS [None]
  - HYPERSENSITIVITY [None]
  - JAUNDICE [None]
  - OCULAR ICTERUS [None]
  - OESOPHAGEAL CANDIDIASIS [None]
  - ORAL CANDIDIASIS [None]
  - SPEECH DISORDER [None]
  - STEVENS-JOHNSON SYNDROME [None]
  - SWOLLEN TONGUE [None]
  - TONGUE ULCERATION [None]
